FAERS Safety Report 4457196-5 (Version None)
Quarter: 2004Q3

REPORT INFORMATION
  Report Type: 
  Country: None (occurrence: None)
  Receive Date: 20040923
  Receipt Date: 20040916
  Transmission Date: 20050211
  Serious: Yes (Hospitalization)
  Sender: FDA-Public Use
  Company Number: PHBS2004JP12419

PATIENT
  Age: 70 Year
  Sex: Female

DRUGS (3)
  1. DIOVAN [Suspect]
     Dosage: 80 MG/DAY
     Route: 048
     Dates: start: 20040912
  2. BASEN [Concomitant]
     Dosage: .2 MG, UNK
     Route: 048
  3. LIPITOR [Concomitant]
     Dosage: 5 MG, UNK
     Route: 048

REACTIONS (3)
  - ATRIAL FIBRILLATION [None]
  - HEART RATE INCREASED [None]
  - SUPRAVENTRICULAR TACHYCARDIA [None]
